FAERS Safety Report 20737286 (Version 1)
Quarter: 2022Q2

REPORT INFORMATION
  Report Type: Spontaneous
  Country: GB (occurrence: None)
  Receive Date: 20220421
  Receipt Date: 20220421
  Transmission Date: 20220721
  Serious: Yes (Other)
  Sender: FDA-Public Use
  Company Number: 2022A146463

PATIENT
  Age: 74 Year
  Sex: Female
  Weight: 90 kg

DRUGS (12)
  1. DAPAGLIFLOZIN [Suspect]
     Active Substance: DAPAGLIFLOZIN
     Dosage: TAKE ONE DAILY
     Route: 048
     Dates: start: 20211006
  2. ALOGLIPTIN [Concomitant]
     Active Substance: ALOGLIPTIN
     Dosage: 1 32 1 1 / DAY ONE EVERY DAY
     Dates: start: 20211006
  3. ATORVASTATIN [Concomitant]
     Active Substance: ATORVASTATIN
     Indication: Blood cholesterol increased
     Dosage: TAKE ONE EACH NIGHT (TO HELP REDUCE CHOLESTEROL...
     Dates: start: 20211006
  4. ESTRIOL [Concomitant]
     Active Substance: ESTRIOL
     Dosage: APPLY AT NIGHT
     Dates: start: 20220102
  5. FLUOXETINE [Concomitant]
     Active Substance: FLUOXETINE HYDROCHLORIDE
     Indication: Depressed mood
     Dosage: TAKE ONE EACH MORNING FOR LOW MOOD
     Dates: start: 20210827
  6. POTASSIUM BICARBONATE\SODIUM ALGINATE [Concomitant]
     Active Substance: POTASSIUM BICARBONATE\SODIUM ALGINATE
     Dosage: TAKE 10ML 4 TIMES/DAY AS REQUIRED
     Dates: start: 20211006
  7. ACETAMINOPHEN [Concomitant]
     Active Substance: ACETAMINOPHEN
     Dosage: TWO TO BE TAKEN FOUR TIMES DAILY WHEN REQUIRED
     Dates: start: 20211006
  8. RABEPRAZOLE [Concomitant]
     Active Substance: RABEPRAZOLE
     Dosage: ONE DAILY
     Dates: start: 20211006
  9. ALBUTEROL [Concomitant]
     Active Substance: ALBUTEROL
     Dosage: INHALE ONE OR TWO PUFFS WHEN REQUIRED UP TO FOUR...
     Dates: start: 20211006
  10. SOTALOL [Concomitant]
     Active Substance: SOTALOL
     Dosage: TAKE 40 MG IN THE EVENING
     Dates: start: 20211006
  11. TRANDOLAPRIL [Concomitant]
     Active Substance: TRANDOLAPRIL
     Dosage: TAKE TWO DAILY
     Dates: start: 20211006
  12. WARFARIN SODIUM [Concomitant]
     Active Substance: WARFARIN SODIUM
     Dosage: TAKE ONE AS DIRECTED
     Dates: start: 20211006

REACTIONS (3)
  - Urinary incontinence [Recovered/Resolved]
  - Urinary tract infection [Recovered/Resolved]
  - Genital infection [Recovered/Resolved]

NARRATIVE: CASE EVENT DATE: 20220406
